FAERS Safety Report 5334516-0 (Version None)
Quarter: 2007Q2

REPORT INFORMATION
  Report Type: 
  Country: None (occurrence: None)
  Receive Date: 20070525
  Receipt Date: 20070511
  Transmission Date: 20071010
  Serious: Yes (Hospitalization)
  Sender: FDA-Public Use
  Company Number: US-ASTRAZENECA-2007UW12452

PATIENT
  Age: 81 Year
  Sex: Male
  Weight: 102.3 kg

DRUGS (7)
  1. NEXIUM [Suspect]
     Indication: GASTROOESOPHAGEAL REFLUX DISEASE
     Route: 048
  2. PRILOSEC OTC [Suspect]
     Indication: GASTROOESOPHAGEAL REFLUX DISEASE
  3. TOPROL-XL [Concomitant]
     Route: 048
  4. NORVASC [Concomitant]
  5. DIGITEK [Concomitant]
  6. BENICAR HCT [Concomitant]
  7. PRILOSEC OTC [Concomitant]
     Dates: end: 20070511

REACTIONS (3)
  - DIARRHOEA [None]
  - HEART RATE DECREASED [None]
  - HYPERTENSION [None]
